FAERS Safety Report 12799421 (Version 1)
Quarter: 2016Q3

REPORT INFORMATION
  Report Type: Spontaneous
  Country: ES (occurrence: ES)
  Receive Date: 20160930
  Receipt Date: 20160930
  Transmission Date: 20161109
  Serious: Yes (Other)
  Sender: FDA-Public Use
  Company Number: ES-JNJFOC-20160925823

PATIENT
  Age: 16 Year
  Sex: Female

DRUGS (19)
  1. MITOTANE [Concomitant]
     Active Substance: MITOTANE
     Indication: ADRENOCORTICAL CARCINOMA
     Route: 065
  2. GEMCITABINE [Concomitant]
     Active Substance: GEMCITABINE\GEMCITABINE HYDROCHLORIDE
     Indication: ADRENOCORTICAL CARCINOMA
     Route: 065
     Dates: start: 201206
  3. MESNA. [Suspect]
     Active Substance: MESNA
     Indication: ADRENOCORTICAL CARCINOMA
     Dosage: ON DAY 1-3
     Route: 065
     Dates: start: 201012
  4. CISPLATIN. [Suspect]
     Active Substance: CISPLATIN
     Indication: ADRENOCORTICAL CARCINOMA
     Dosage: ON DAY 1
     Route: 065
  5. CAELYX [Suspect]
     Active Substance: DOXORUBICIN HYDROCHLORIDE
     Indication: ADRENOCORTICAL CARCINOMA
     Dosage: ON DAY 1
     Route: 065
     Dates: start: 201012
  6. SORAFENIB [Suspect]
     Active Substance: SORAFENIB
     Indication: ADRENOCORTICAL CARCINOMA
     Route: 065
     Dates: end: 201010
  7. IFOSFAMIDE. [Suspect]
     Active Substance: IFOSFAMIDE
     Indication: ADRENOCORTICAL CARCINOMA
     Route: 065
     Dates: start: 201012
  8. BEVACIZUMAB [Suspect]
     Active Substance: BEVACIZUMAB
     Indication: ADRENOCORTICAL CARCINOMA
     Dosage: EVERY 15 DAYS IN A 21 DAY-CYCLE
     Route: 065
     Dates: start: 201301
  9. HYDROCORTISONE. [Concomitant]
     Active Substance: HYDROCORTISONE
     Indication: ADRENOCORTICAL CARCINOMA
     Route: 065
  10. CAPECITABINE. [Concomitant]
     Active Substance: CAPECITABINE
     Indication: ADRENOCORTICAL CARCINOMA
     Route: 065
     Dates: start: 201206
  11. CAELYX [Suspect]
     Active Substance: DOXORUBICIN HYDROCHLORIDE
     Indication: ADRENOCORTICAL CARCINOMA
     Dosage: RECEIVED 8 CYCLES
     Route: 065
     Dates: start: 200909
  12. KETOCONAZOLE. [Suspect]
     Active Substance: KETOCONAZOLE
     Indication: HYPERCORTICOIDISM
     Route: 065
  13. CISPLATIN. [Suspect]
     Active Substance: CISPLATIN
     Indication: ADRENOCORTICAL CARCINOMA
     Dosage: ON DAY 1
     Route: 065
     Dates: start: 201203
  14. MITOTANE [Concomitant]
     Active Substance: MITOTANE
     Indication: ADRENOCORTICAL CARCINOMA
     Route: 065
  15. ETOPOSIDE. [Suspect]
     Active Substance: ETOPOSIDE
     Indication: ADRENOCORTICAL CARCINOMA
     Dosage: ON DAYS 1, 2, 3 EVERY 21 DAYS
     Route: 065
  16. CISPLATIN. [Suspect]
     Active Substance: CISPLATIN
     Indication: ADRENOCORTICAL CARCINOMA
     Route: 065
     Dates: start: 200909
  17. MITOTANE [Concomitant]
     Active Substance: MITOTANE
     Indication: ADRENOCORTICAL CARCINOMA
     Route: 065
     Dates: start: 200908
  18. CAELYX [Suspect]
     Active Substance: DOXORUBICIN HYDROCHLORIDE
     Indication: ADRENOCORTICAL CARCINOMA
     Dosage: ON DAY 1
     Route: 065
     Dates: start: 201203
  19. PACLITAX NAB [Concomitant]
     Active Substance: PACLITAXEL
     Indication: ADRENOCORTICAL CARCINOMA
     Route: 065
     Dates: start: 201301

REACTIONS (7)
  - Cystitis haemorrhagic [Unknown]
  - Pneumonia [Unknown]
  - Gastroenteritis [Unknown]
  - Mucosal inflammation [Unknown]
  - Pyrexia [Unknown]
  - Off label use [Unknown]
  - Product use issue [Unknown]
